FAERS Safety Report 8316266-1 (Version None)
Quarter: 2012Q2

REPORT INFORMATION
  Report Type: 
  Country: None (occurrence: None)
  Receive Date: 20120427
  Receipt Date: 20120423
  Transmission Date: 20120825
  Serious: No
  Sender: FDA-Public Use
  Company Number: US-PFIZER INC-2012100388

PATIENT
  Sex: Female
  Weight: 94 kg

DRUGS (1)
  1. NORPACE [Suspect]
     Indication: HYPERTROPHIC CARDIOMYOPATHY
     Dosage: 300 MG (150MG TWO CAPSULES), TWICE A DAY
     Route: 048
     Dates: start: 20120101, end: 20120401

REACTIONS (3)
  - ASTHENIA [None]
  - WRONG DRUG ADMINISTERED [None]
  - FATIGUE [None]
